FAERS Safety Report 4581987-3 (Version None)
Quarter: 2005Q1

REPORT INFORMATION
  Report Type: 
  Country: None (occurrence: None)
  Receive Date: 20050119
  Receipt Date: 20041015
  Transmission Date: 20050727
  Serious: Yes (Death)
  Sender: FDA-Public Use
  Company Number: US-JNJFOC-20040806296

PATIENT
  Age: 89 Year
  Sex: Female
  Weight: 57.1532 kg

DRUGS (5)
  1. DOXIL [Suspect]
     Indication: MULTIPLE MYELOMA
     Dosage: 60 MG, INTRAVENOUS
     Route: 042
     Dates: start: 20040505, end: 20040505
  2. VINCRISTINE (INJECTION) VINCRISTINE [Concomitant]
  3. AREDIA (INJECTION) PAMIDRONATE DISODIUM [Concomitant]
  4. ANZEMET (DOLASETRON MESILATE) TABLETS [Concomitant]
  5. DECADRON [Concomitant]

REACTIONS (1)
  - MULTIPLE MYELOMA [None]
